FAERS Safety Report 12526691 (Version 1)
Quarter: 2016Q3

REPORT INFORMATION
  Report Type: Spontaneous
  Country: US (occurrence: None)
  Receive Date: 20160701
  Receipt Date: 20160701
  Transmission Date: 20161109
  Serious: Yes (Hospitalization)
  Sender: FDA-Public Use
  Company Number: None

PATIENT
  Age: 48 Year
  Sex: Male
  Weight: 122.5 kg

DRUGS (11)
  1. CALCIUM-VITAMIN D [Concomitant]
  2. CARVEDILOL. [Concomitant]
     Active Substance: CARVEDILOL
  3. VANCOMYCIN 5GM SAGENT PHARMACEUTICAL [Suspect]
     Active Substance: VANCOMYCIN
     Indication: HUMERUS FRACTURE
     Dosage: 1500MG EVERY 12 HOURS IV
     Route: 042
     Dates: start: 20160614, end: 20160621
  4. ASPIRIN. [Concomitant]
     Active Substance: ASPIRIN
  5. OXYCODONE-ACETAMINOPHEN [Concomitant]
     Active Substance: ACETAMINOPHEN\OXYCODONE HYDROCHLORIDE
  6. ONDANSETRON [Concomitant]
     Active Substance: ONDANSETRON
  7. PREGABALIN. [Concomitant]
     Active Substance: PREGABALIN
  8. APIXABAN [Concomitant]
     Active Substance: APIXABAN
  9. ATORVASTATIN [Concomitant]
     Active Substance: ATORVASTATIN
  10. LISINOPRIL. [Concomitant]
     Active Substance: LISINOPRIL
  11. FUROSEMIDE. [Concomitant]
     Active Substance: FUROSEMIDE

REACTIONS (3)
  - Acute kidney injury [None]
  - Gastroenteritis viral [None]
  - Dehydration [None]

NARRATIVE: CASE EVENT DATE: 20160620
